FAERS Safety Report 21789847 (Version 1)
Quarter: 2022Q4

REPORT INFORMATION
  Report Type: Spontaneous
  Country: US (occurrence: US)
  Receive Date: 20221228
  Receipt Date: 20221228
  Transmission Date: 20230113
  Serious: Yes (Death, Hospitalization, Other)
  Sender: FDA-Public Use
  Company Number: US-FreseniusKabi-FK202218434

PATIENT
  Age: 50 Year
  Sex: Male

DRUGS (3)
  1. METHYLPREDNISOLONE [Suspect]
     Active Substance: METHYLPREDNISOLONE
     Indication: Morvan syndrome
  2. PREDNISONE [Suspect]
     Active Substance: PREDNISONE
     Indication: Morvan syndrome
  3. RITUXIMAB [Suspect]
     Active Substance: RITUXIMAB
     Indication: Morvan syndrome

REACTIONS (3)
  - Urosepsis [Fatal]
  - Pyelonephritis [Fatal]
  - Urinary tract infection [Not Recovered/Not Resolved]
